FAERS Safety Report 10042075 (Version 3)
Quarter: 2014Q2

REPORT INFORMATION
  Report Type: Spontaneous
  Country: JP (occurrence: JP)
  Receive Date: 20140327
  Receipt Date: 20140625
  Transmission Date: 20141212
  Serious: Yes (Death)
  Sender: FDA-Public Use
  Company Number: PHHY2014JP036029

PATIENT
  Age: 5 Year
  Sex: Male

DRUGS (7)
  1. GLIVEC [Suspect]
     Indication: ACUTE LYMPHOCYTIC LEUKAEMIA
     Dosage: 340 MG/M2, PER DAY
     Route: 048
  2. GLIVEC [Suspect]
     Dosage: 400 MG, DAILY
     Route: 048
     Dates: start: 20081125, end: 20090222
  3. GLIVEC [Suspect]
     Dosage: 400 MG, DAILY
     Route: 048
     Dates: start: 20090408, end: 20090618
  4. TASIGNA [Suspect]
     Indication: ACUTE LYMPHOCYTIC LEUKAEMIA
     Dosage: 600 MG, DAILY
     Route: 048
     Dates: start: 20101021, end: 20101221
  5. DASATINIB [Suspect]
     Indication: ACUTE LYMPHOCYTIC LEUKAEMIA
     Route: 048
  6. ETOPOSIDE [Concomitant]
     Dosage: 60 MG/KG, PER DAY
  7. ENDOXAN [Concomitant]
     Dosage: 60 MG/KG, PER DAY

REACTIONS (4)
  - Acute lymphocytic leukaemia [Fatal]
  - Malignant neoplasm progression [Fatal]
  - Drug resistance [Unknown]
  - Drug ineffective [Unknown]
